FAERS Safety Report 10954820 (Version 4)
Quarter: 2015Q2

REPORT INFORMATION
  Report Type: Spontaneous
  Country: JP (occurrence: JP)
  Receive Date: 20150325
  Receipt Date: 20150427
  Transmission Date: 20150821
  Serious: Yes (Hospitalization)
  Sender: FDA-Public Use
  Company Number: JP-009507513-1503JPN012258

PATIENT
  Age: 78 Year
  Sex: Male

DRUGS (5)
  1. FLIVAS [Concomitant]
     Active Substance: NAFTOPIDIL
     Indication: BENIGN PROSTATIC HYPERPLASIA
     Dosage: 20 MG, DIVIDED DOSE FREQUENCY UNKNOWN
     Route: 048
     Dates: end: 20141106
  2. LIVALO [Concomitant]
     Active Substance: PITAVASTATIN CALCIUM
     Indication: HYPERCHOLESTEROLAEMIA
     Dosage: 1 MG, DIVIDED DOSE FREQUENCY UNKNOWN
     Route: 048
     Dates: end: 20141106
  3. JANUVIA [Suspect]
     Active Substance: SITAGLIPTIN PHOSPHATE
     Indication: TYPE 2 DIABETES MELLITUS
     Dosage: 50 MG, ONCE A DAY
     Route: 048
     Dates: start: 20140425, end: 20141106
  4. MYSLEE [Concomitant]
     Active Substance: ZOLPIDEM TARTRATE
     Indication: INSOMNIA
     Dosage: 5 MG, DIVIDED DOSE FREQUENCY UNKNOWN
     Route: 048
     Dates: end: 20141106
  5. YODEL S [Concomitant]
     Active Substance: SENNA LEAF\SENNOSIDES\SENNOSIDES A AND B
     Indication: CONSTIPATION
     Dosage: DAILY DOSAGE UNKNOWN
     Route: 048
     Dates: end: 20141106

REACTIONS (2)
  - Pemphigoid [Recovering/Resolving]
  - Pneumonia aspiration [Recovering/Resolving]

NARRATIVE: CASE EVENT DATE: 201409
